FAERS Safety Report 9166312 (Version 5)
Quarter: 2014Q2

REPORT INFORMATION
  Report Type: Spontaneous
  Country: US (occurrence: US)
  Receive Date: 20130315
  Receipt Date: 20140612
  Transmission Date: 20141212
  Serious: Yes (Hospitalization, Other)
  Sender: FDA-Public Use
  Company Number: US-VERTEX PHARMACEUTICALS INC.-2013-003620

PATIENT
  Age: 58 Year
  Sex: Male

DRUGS (7)
  1. INCIVEK [Suspect]
     Indication: CHRONIC HEPATITIS C
     Dosage: 750 MG, TID
     Route: 048
     Dates: start: 20121001, end: 20121217
  2. RIBAVIRIN [Suspect]
     Indication: CHRONIC HEPATITIS C
     Dosage: 1200 MG, BID
     Route: 048
     Dates: start: 20121001, end: 20121217
  3. PEGINTERFERON ALFA-2A [Suspect]
     Indication: CHRONIC HEPATITIS C
     Dosage: 180 ?G, QW
     Route: 058
     Dates: start: 20120924, end: 20121210
  4. METHADONE [Concomitant]
     Dosage: UNK
     Dates: start: 1991
  5. ATARAX [Concomitant]
     Dosage: UNK
     Dates: start: 20121008
  6. ZOFRAN [Concomitant]
     Dosage: UNK
     Dates: start: 20121008
  7. LASIX [Concomitant]

REACTIONS (1)
  - Anaemia [Recovered/Resolved]
